FAERS Safety Report 9425561 (Version 1)
Quarter: 2013Q3

REPORT INFORMATION
  Report Type: Spontaneous
  Country: US (occurrence: US)
  Receive Date: 20130729
  Receipt Date: 20130729
  Transmission Date: 20140515
  Serious: No
  Sender: FDA-Public Use
  Company Number: US-MYLANLABS-2012S1023649

PATIENT
  Age: 66 Year
  Sex: Female

DRUGS (4)
  1. LEVOTHYROXINE SODIUM TABLETS, USP [Suspect]
     Indication: HYPOTHYROIDISM
     Route: 048
     Dates: start: 201012, end: 20110123
  2. LEVOTHROID [Suspect]
     Indication: HYPOTHYROIDISM
     Dates: start: 20100621, end: 201012
  3. LEVOTHROID [Suspect]
     Indication: HYPOTHYROIDISM
     Dates: start: 20110124
  4. LATANOPROST [Concomitant]
     Indication: GLAUCOMA

REACTIONS (3)
  - Lip swelling [Recovered/Resolved]
  - Swelling face [Recovered/Resolved]
  - Local swelling [Recovered/Resolved]
